FAERS Safety Report 23975180 (Version 1)
Quarter: 2024Q2

REPORT INFORMATION
  Report Type: Report from Study
  Country: IT (occurrence: IT)
  Receive Date: 20240614
  Receipt Date: 20240614
  Transmission Date: 20240716
  Serious: Yes (Hospitalization, Other)
  Sender: FDA-Public Use
  Company Number: IT-UCBSA-2024029946

PATIENT
  Sex: Male

DRUGS (1)
  1. ZILUCOPLAN [Suspect]
     Active Substance: ZILUCOPLAN
     Indication: Product used for unknown indication
     Dosage: UNK

REACTIONS (1)
  - Myasthenia gravis [Unknown]
